FAERS Safety Report 19773277 (Version 1)
Quarter: 2021Q3

REPORT INFORMATION
  Report Type: Spontaneous
  Country: US (occurrence: US)
  Receive Date: 20210901
  Receipt Date: 20210901
  Transmission Date: 20211014
  Serious: Yes (Other)
  Sender: FDA-Public Use
  Company Number: US-35507-2021-16053

PATIENT
  Age: 29 Year
  Sex: Male

DRUGS (16)
  1. RISPERIDONE. [Interacting]
     Active Substance: RISPERIDONE
     Dosage: ON DAY 16
     Route: 048
  2. RISPERIDONE. [Interacting]
     Active Substance: RISPERIDONE
     Dosage: 3 MILLIGRAM (STARTED FROM DAY 9 ONWARDS)
     Route: 048
  3. OLANZAPINE. [Interacting]
     Active Substance: OLANZAPINE
     Dosage: 7.5 MILLIGRAM (ON DAY 3)
     Route: 065
  4. HYDROXYZINE [Interacting]
     Active Substance: HYDROXYZINE HYDROCHLORIDE
     Indication: ANXIETY
     Dosage: 50 MILLIGRAM
     Route: 065
  5. RISPERIDONE. [Interacting]
     Active Substance: RISPERIDONE
     Dosage: 2 MILLIGRAM (ON DAY 6)
     Route: 048
  6. PALIPERIDONE PALMITATE [Interacting]
     Active Substance: PALIPERIDONE PALMITATE
     Indication: MAJOR DEPRESSION
     Dosage: 234 MILLIGRAM (ON DAY 8)
     Route: 030
  7. MIRTAZAPINE. [Concomitant]
     Active Substance: MIRTAZAPINE
     Indication: MAJOR DEPRESSION
     Dosage: 15 MILLIGRAM, QD (NIGHTLY)
     Route: 016
  8. SERTRALINE [Suspect]
     Active Substance: SERTRALINE HYDROCHLORIDE
     Indication: MAJOR DEPRESSION
     Dosage: 25 MILLIGRAM, QD
     Route: 065
  9. OLANZAPINE. [Interacting]
     Active Substance: OLANZAPINE
     Indication: PSYCHOTIC DISORDER
     Dosage: 5 MILLIGRAM (ON DAY 2)
     Route: 065
  10. RISPERIDONE. [Interacting]
     Active Substance: RISPERIDONE
     Dosage: 1 MILLIGRAM (ON DAY 5)
     Route: 048
  11. RISPERIDONE. [Interacting]
     Active Substance: RISPERIDONE
     Dosage: 2MG + 1MG + 3MG, (ON DAY 8)
     Route: 048
  12. ATORVASTATIN [Concomitant]
     Active Substance: ATORVASTATIN
     Indication: MAJOR DEPRESSION
     Dosage: 20 MILLIGRAM, QD (NIGHTLY)
     Route: 065
  13. RISPERIDONE. [Interacting]
     Active Substance: RISPERIDONE
     Indication: MAJOR DEPRESSION
     Dosage: 2 MILLIGRAM, QD (ON DAY 4)
     Route: 048
  14. PALIPERIDONE PALMITATE [Interacting]
     Active Substance: PALIPERIDONE PALMITATE
     Dosage: 156 MILLIGRAM (BOOSTER ON DAY 16)
     Route: 030
  15. TRAZODONE [Interacting]
     Active Substance: TRAZODONE HYDROCHLORIDE
     Indication: SLEEP DISORDER
     Dosage: 50 MILLIGRAM, QD (NIGHTLY)
     Route: 065
  16. RISPERIDONE. [Interacting]
     Active Substance: RISPERIDONE
     Dosage: 2MG + 3MG, (ON DAY 7)
     Route: 048

REACTIONS (2)
  - Tachycardia [Not Recovered/Not Resolved]
  - Potentiating drug interaction [Unknown]
